FAERS Safety Report 9107944 (Version 3)
Quarter: 2013Q2

REPORT INFORMATION
  Report Type: Report from Study
  Country: DE (occurrence: DE)
  Receive Date: 20130221
  Receipt Date: 20130416
  Transmission Date: 20140414
  Serious: Yes (Hospitalization)
  Sender: FDA-Public Use
  Company Number: DE-AMGEN-DEUCT2013011658

PATIENT
  Age: 55 Year
  Sex: Female
  Weight: 67 kg

DRUGS (9)
  1. ETANERCEPT [Suspect]
     Indication: RHEUMATOID ARTHRITIS
     Dosage: 50 MG, QWK
     Dates: start: 20111026, end: 201208
  2. ETANERCEPT [Suspect]
     Dosage: 50 MG, EVERY 5 DAYS
     Dates: start: 20120809, end: 20121011
  3. L-THYROXIN [Concomitant]
     Indication: HYPOTHYROIDISM
     Dosage: 75 UG DAILY
     Route: 048
     Dates: start: 2004
  4. PREDNISOLON                        /00016201/ [Concomitant]
     Indication: RHEUMATOID ARTHRITIS
     Dosage: 5 MG, DAILY
     Dates: start: 201203, end: 201208
  5. PREDNISOLON                        /00016201/ [Concomitant]
     Dosage: 10 MG, QD
     Dates: start: 201208
  6. MTX                                /00113802/ [Concomitant]
     Indication: RHEUMATOID ARTHRITIS
     Dosage: 7.5 MG, WEEKLY
     Route: 048
     Dates: start: 2011
  7. DECORTIN [Concomitant]
     Indication: RHEUMATOID ARTHRITIS
     Dosage: 10 MG DAILY
     Route: 048
     Dates: start: 2011
  8. LODOTRA [Concomitant]
     Indication: RHEUMATOID ARTHRITIS
     Dosage: 2 MG DAILY
     Route: 048
     Dates: start: 2011
  9. PROCORALAN [Concomitant]
     Indication: ARRHYTHMIA
     Dosage: UNK UNK, QD (DAILY)
     Route: 048
     Dates: start: 2004

REACTIONS (1)
  - Drug ineffective [Recovered/Resolved]
